FAERS Safety Report 9384900 (Version 1)
Quarter: 2013Q3

REPORT INFORMATION
  Report Type: Spontaneous
  Country: US (occurrence: US)
  Receive Date: 20130705
  Receipt Date: 20130705
  Transmission Date: 20140515
  Serious: No
  Sender: FDA-Public Use
  Company Number: US-PFIZER INC-2013198196

PATIENT
  Age: 64 Year
  Sex: Female
  Weight: 99.77 kg

DRUGS (2)
  1. LYRICA [Suspect]
     Indication: NEURALGIA
     Dosage: 75 MG, 2X/DAY
     Dates: start: 201306, end: 2013
  2. SYNTHROID [Concomitant]
     Dosage: 125 UG, 1X/DAY (DAILY)

REACTIONS (4)
  - Somnolence [Unknown]
  - Blood bilirubin increased [Unknown]
  - Blood sodium decreased [Unknown]
  - Drug ineffective [Unknown]
